FAERS Safety Report 9225759 (Version 1)
Quarter: 2013Q2

REPORT INFORMATION
  Report Type: Spontaneous
  Country: US (occurrence: None)
  Receive Date: 20130410
  Receipt Date: 20130410
  Transmission Date: 20140414
  Serious: No
  Sender: FDA-Public Use
  Company Number: None

PATIENT
  Age: 62 Year
  Sex: Female
  Weight: 47.17 kg

DRUGS (4)
  1. TRAZADONE [Suspect]
     Indication: INITIAL INSOMNIA
     Dosage: 3 DOSES EACH NIGHTLY, PO
     Route: 048
  2. TRAZADONE [Suspect]
     Indication: MIDDLE INSOMNIA
     Dosage: 3 DOSES EACH NIGHTLY, PO
     Route: 048
  3. TRAZODONE [Suspect]
     Indication: INITIAL INSOMNIA
     Dosage: 3 DOSES EACH NIGHTLY PO
     Route: 048
  4. TRAZODONE [Suspect]
     Indication: MIDDLE INSOMNIA
     Dosage: 3 DOSES EACH NIGHTLY PO
     Route: 048

REACTIONS (10)
  - Product substitution issue [None]
  - Product quality issue [None]
  - Drug ineffective [None]
  - Agitation [None]
  - Restlessness [None]
  - Irritability [None]
  - Anger [None]
  - Mood altered [None]
  - Initial insomnia [None]
  - Middle insomnia [None]
